FAERS Safety Report 9269959 (Version 1)
Quarter: 2013Q2

REPORT INFORMATION
  Report Type: Spontaneous
  Country: US (occurrence: US)
  Receive Date: 20130503
  Receipt Date: 20130503
  Transmission Date: 20140414
  Serious: No
  Sender: FDA-Public Use
  Company Number: US-PFIZER INC-2013134958

PATIENT
  Age: 63 Year
  Sex: Female
  Weight: 58.96 kg

DRUGS (5)
  1. PREMARIN [Suspect]
     Indication: ATROPHIC VULVOVAGINITIS
     Dosage: UNK, 2X/WEEK
     Route: 067
     Dates: start: 201104, end: 2011
  2. PREMARIN [Suspect]
     Indication: VULVOVAGINAL DRYNESS
     Dosage: UNK
     Route: 067
     Dates: start: 201304
  3. AMLODIPINE [Concomitant]
     Indication: HYPERTENSION
     Dosage: UNK
  4. BYSTOLIC [Concomitant]
     Indication: HYPERTENSION
     Dosage: UNK
  5. PRAVASTATIN [Concomitant]
     Indication: BLOOD CHOLESTEROL INCREASED
     Dosage: 40 MG, UNK

REACTIONS (2)
  - Vaginal disorder [Unknown]
  - Expired drug administered [Unknown]
